FAERS Safety Report 15066400 (Version 2)
Quarter: 2018Q3

REPORT INFORMATION
  Report Type: Report from Study
  Country: JP (occurrence: JP)
  Receive Date: 20180626
  Receipt Date: 20180705
  Transmission Date: 20181010
  Serious: Yes (Death, Hospitalization)
  Sender: FDA-Public Use
  Company Number: JP-ACTELION-A-CH2017-163692

PATIENT
  Age: 65 Year
  Sex: Female

DRUGS (7)
  1. DIART [Concomitant]
     Active Substance: AZOSEMIDE
  2. OPSUMIT [Suspect]
     Active Substance: MACITENTAN
     Indication: PULMONARY ARTERIAL HYPERTENSION
     Dosage: 10 MG, QD
     Route: 048
     Dates: start: 20160528, end: 20160616
  3. ALDACTONE A [Concomitant]
     Active Substance: SPIRONOLACTONE
  4. FERROUS CITRATE NA [Concomitant]
     Active Substance: SODIUM FERROUS CITRATE
  5. OXYGEN. [Concomitant]
     Active Substance: OXYGEN
  6. REVATIO [Concomitant]
     Active Substance: SILDENAFIL CITRATE
  7. BERASUS [Concomitant]
     Active Substance: BERAPROST SODIUM

REACTIONS (4)
  - Cyanosis [Recovered/Resolved]
  - Dyspnoea [Recovered/Resolved]
  - Right ventricular failure [Fatal]
  - Oxygen saturation decreased [Recovered/Resolved]

NARRATIVE: CASE EVENT DATE: 20160604
